FAERS Safety Report 6547453-0 (Version None)
Quarter: 2010Q1

REPORT INFORMATION
  Report Type: 
  Country: None (occurrence: None)
  Receive Date: 20100122
  Receipt Date: 20100111
  Transmission Date: 20100710
  Serious: Yes (Hospitalization)
  Sender: FDA-Public Use
  Company Number: -MYLANLABS-2009S1021364

PATIENT
  Age: 79 Year
  Sex: Female
  Weight: 47.63 kg

DRUGS (12)
  1. MILNACIPRAN HYDROCHLORIDE [Suspect]
     Indication: FIBROMYALGIA
     Route: 048
     Dates: start: 20090528, end: 20090528
  2. MILNACIPRAN HYDROCHLORIDE [Suspect]
     Route: 048
     Dates: start: 20090529, end: 20090530
  3. MILNACIPRAN HYDROCHLORIDE [Suspect]
     Route: 048
     Dates: start: 20090531, end: 20090603
  4. MILNACIPRAN HYDROCHLORIDE [Suspect]
     Route: 048
     Dates: start: 20090604, end: 20090610
  5. TYLENOL W/ CODEINE [Suspect]
     Indication: FIBROMYALGIA
     Dates: end: 20090610
  6. AMITRIPTYLINE HCL [Suspect]
     Indication: DEPRESSION
     Route: 048
     Dates: start: 20080818, end: 20090610
  7. LIPITOR [Concomitant]
     Indication: BLOOD CHOLESTEROL INCREASED
  8. METOPROLOL TARTRATE [Concomitant]
     Indication: HYPERTENSION
  9. ZETIA [Concomitant]
     Indication: BLOOD CHOLESTEROL INCREASED
  10. ASPIRIN [Concomitant]
  11. ATIVAN [Concomitant]
     Indication: ANXIETY
  12. NORVASC [Concomitant]
     Indication: HYPERTENSION

REACTIONS (2)
  - MENTAL STATUS CHANGES [None]
  - POTENTIATING DRUG INTERACTION [None]
